FAERS Safety Report 24557799 (Version 1)
Quarter: 2024Q4

REPORT INFORMATION
  Report Type: Spontaneous
  Country: US (occurrence: US)
  Receive Date: 20241028
  Receipt Date: 20241028
  Transmission Date: 20250114
  Serious: No
  Sender: SUNOVION
  Company Number: US-SMPA-2024SPA004233AA

PATIENT

DRUGS (7)
  1. ORGOVYX [Suspect]
     Active Substance: RELUGOLIX
     Indication: Prostate cancer
     Dosage: 360 MG, SINGLE
     Route: 048
     Dates: start: 20240202, end: 20240202
  2. ORGOVYX [Suspect]
     Active Substance: RELUGOLIX
     Dosage: 120 MG, QD
     Route: 048
     Dates: start: 20240203
  3. BIMATOPROST [Concomitant]
     Active Substance: BIMATOPROST
     Route: 065
  4. BISOPROLOL/HYDROCHLOROTHIAZIDE EG [Concomitant]
     Dosage: UNK
     Route: 065
  5. DORZOLAMIDE HYDROCHLORIDE\TIMOLOL MALEATE [Concomitant]
     Active Substance: DORZOLAMIDE HYDROCHLORIDE\TIMOLOL MALEATE
     Route: 065
  6. LOSARTAN [Concomitant]
     Active Substance: LOSARTAN
     Route: 065
  7. TIMOLOL MALEATE [Concomitant]
     Active Substance: TIMOLOL MALEATE
     Route: 047

REACTIONS (3)
  - White blood cell count decreased [Unknown]
  - Blood glucose increased [Unknown]
  - Haemoglobin decreased [Unknown]
